FAERS Safety Report 11595993 (Version 3)
Quarter: 2017Q3

REPORT INFORMATION
  Report Type: Spontaneous
  Country: US (occurrence: US)
  Receive Date: 20151006
  Receipt Date: 20170818
  Transmission Date: 20171127
  Serious: No
  Sender: FDA-Public Use
  Company Number: US-PFIZER INC-2015322828

PATIENT
  Age: 77 Year
  Sex: Male
  Weight: 72.56 kg

DRUGS (6)
  1. XELJANZ [Suspect]
     Active Substance: TOFACITINIB CITRATE
     Dosage: 10 MG, DAILY, (1 TABLET IN THE MORNING AND 1 TABLET AT NIGHT)
     Dates: end: 201707
  2. XELJANZ XR [Suspect]
     Active Substance: TOFACITINIB CITRATE
     Indication: RHEUMATOID ARTHRITIS
     Dosage: 11 MG, 1X/DAY, (1 TABLET IN THE MORNING BY MOUTH)
     Route: 048
     Dates: start: 201707
  3. METHOTREXATE. [Concomitant]
     Active Substance: METHOTREXATE
     Dosage: UNK
  4. XELJANZ [Suspect]
     Active Substance: TOFACITINIB CITRATE
     Indication: RHEUMATOID ARTHRITIS
     Dosage: 5 MG, 2X/DAY
     Dates: start: 201410
  5. PREDNISONE. [Concomitant]
     Active Substance: PREDNISONE
     Dosage: UNK
  6. GABAPENTIN. [Suspect]
     Active Substance: GABAPENTIN
     Dosage: UNK
     Dates: end: 20150920

REACTIONS (2)
  - Headache [Recovered/Resolved]
  - Lip swelling [Unknown]

NARRATIVE: CASE EVENT DATE: 201707
